FAERS Safety Report 21505071 (Version 1)
Quarter: 2022Q4

REPORT INFORMATION
  Report Type: Spontaneous
  Country: US (occurrence: None)
  Receive Date: 20221025
  Receipt Date: 20221025
  Transmission Date: 20230112
  Serious: Yes (Hospitalization)
  Sender: FDA-Public Use
  Company Number: None

PATIENT
  Age: 34 Year
  Sex: Female

DRUGS (3)
  1. AMBRISENTAN [Suspect]
     Active Substance: AMBRISENTAN
     Indication: Pulmonary hypertension
     Dosage: 5 MG ORAL??TAKE 1 TABLET BY MOUTH DAILY?
     Route: 048
     Dates: start: 20220615
  2. ADCIRCA [Concomitant]
     Active Substance: TADALAFIL
  3. LASIX TAB 20MG [Concomitant]

REACTIONS (3)
  - Gastroenteritis viral [None]
  - Drug hypersensitivity [None]
  - Product dose omission issue [None]

NARRATIVE: CASE EVENT DATE: 20221021
